FAERS Safety Report 8160186-2 (Version None)
Quarter: 2012Q1

REPORT INFORMATION
  Report Type: 
  Country: None (occurrence: None)
  Receive Date: 20120223
  Receipt Date: 20120216
  Transmission Date: 20120608
  Serious: Yes (Other)
  Sender: FDA-Public Use
  Company Number: US-PFIZER INC-2012042517

PATIENT
  Sex: Female

DRUGS (5)
  1. LYRICA [Suspect]
     Indication: FIBROMYALGIA
     Dosage: 50 MG, 2X/DAY
     Route: 048
     Dates: end: 20100101
  2. OXYCONTIN [Concomitant]
     Dosage: UNK
  3. LYRICA [Suspect]
     Indication: HEADACHE
     Dosage: 75 MG, 2X/DAY
     Route: 048
     Dates: start: 20100101, end: 20120212
  4. LYRICA [Suspect]
     Indication: HERPES ZOSTER
     Dosage: 75 MG, 1X/DAY
     Route: 048
     Dates: start: 20120212
  5. PERCOCET [Concomitant]
     Dosage: UNK

REACTIONS (5)
  - AGITATION [None]
  - FATIGUE [None]
  - WEIGHT INCREASED [None]
  - WEIGHT DECREASED [None]
  - FEELING HOT [None]
